FAERS Safety Report 7164442-6 (Version None)
Quarter: 2010Q4

REPORT INFORMATION
  Report Type: 
  Country: None (occurrence: None)
  Receive Date: 20101215
  Receipt Date: 20101207
  Transmission Date: 20110411
  Serious: Yes (Death, Other)
  Sender: FDA-Public Use
  Company Number: GB-BAXTER-2010BH029563

PATIENT
  Age: 14 Year
  Sex: Male

DRUGS (4)
  1. CYCLOPHOSPHAMIDE [Suspect]
     Indication: B-CELL LYMPHOMA
     Route: 065
  2. METHOTREXATE [Suspect]
     Indication: B-CELL LYMPHOMA
     Route: 065
  3. PREDNISOLONE [Suspect]
     Indication: B-CELL LYMPHOMA
     Route: 065
  4. VINCRISTINE SULFATE [Suspect]
     Indication: B-CELL LYMPHOMA
     Route: 065

REACTIONS (8)
  - CANDIDA SEPSIS [None]
  - DEATH [None]
  - DIARRHOEA [None]
  - HYPOTENSION [None]
  - ILEAL PERFORATION [None]
  - PERITONITIS [None]
  - PYREXIA [None]
  - VOMITING [None]
